FAERS Safety Report 6263502-1 (Version None)
Quarter: 2009Q3

REPORT INFORMATION
  Report Type: 
  Country: None (occurrence: None)
  Receive Date: 20090710
  Receipt Date: 20090520
  Transmission Date: 20100115
  Serious: No
  Sender: FDA-Public Use
  Company Number: A0775047A

PATIENT
  Age: 80 Year
  Sex: Female

DRUGS (19)
  1. TYKERB [Suspect]
     Indication: BREAST CANCER
     Dosage: 1250MG PER DAY
     Route: 048
     Dates: start: 20090316
  2. XELODA [Concomitant]
  3. INSULIN [Concomitant]
  4. ALENDRONATE SODIUM [Concomitant]
  5. AMLODIPINE [Concomitant]
  6. ARICEPT [Concomitant]
  7. BENAZEPRIL HYDROCHLORIDE [Concomitant]
  8. GLYBURIDE AND METFORMIN HCL [Concomitant]
  9. LANTUS [Concomitant]
  10. METOPROLOL [Concomitant]
  11. NAMENDA [Concomitant]
  12. OMEPRAZOLE [Concomitant]
  13. SIMVASTATIN [Concomitant]
  14. VAGIFEM [Concomitant]
  15. ASPIRIN [Concomitant]
  16. VITAMIN B-12 [Concomitant]
  17. CALCIUM [Concomitant]
  18. IRON [Concomitant]
  19. FISH OIL [Concomitant]

REACTIONS (4)
  - ABDOMINAL DISCOMFORT [None]
  - BLOOD GLUCOSE DECREASED [None]
  - DIARRHOEA [None]
  - NAUSEA [None]
